FAERS Safety Report 23145763 (Version 2)
Quarter: 2024Q2

REPORT INFORMATION
  Report Type: Report from Study
  Country: US (occurrence: US)
  Receive Date: 20231103
  Receipt Date: 20240520
  Transmission Date: 20240716
  Serious: Yes (Other)
  Sender: FDA-Public Use
  Company Number: US-SANDOZ-SDZ2023US050054

PATIENT
  Sex: Female

DRUGS (1)
  1. HYRIMOZ [Suspect]
     Active Substance: ADALIMUMAB-ADAZ
     Indication: Psoriasis
     Dosage: 40 MG Q2W
     Route: 058
     Dates: start: 20190201, end: 20231018

REACTIONS (6)
  - Uterine haemorrhage [Unknown]
  - Chest discomfort [Unknown]
  - Injection site pain [Unknown]
  - Headache [Unknown]
  - Psoriasis [Unknown]
  - Product storage error [Unknown]
